FAERS Safety Report 4679685-0 (Version None)
Quarter: 2005Q2

REPORT INFORMATION
  Report Type: 
  Country: None (occurrence: None)
  Receive Date: 20050602
  Receipt Date: 20050526
  Transmission Date: 20051028
  Serious: Yes (Other)
  Sender: FDA-Public Use
  Company Number: PHFR2005GB01971

PATIENT

DRUGS (2)
  1. FLUOXETINE [Concomitant]
     Dosage: 10MG PER DAY
  2. RITALIN [Suspect]
     Dosage: 20 MG, TID

REACTIONS (4)
  - MUSCLE SPASTICITY [None]
  - NAUSEA [None]
  - SEROTONIN SYNDROME [None]
  - VOMITING [None]
